FAERS Safety Report 17741750 (Version 2)
Quarter: 2020Q3

REPORT INFORMATION
  Report Type: Spontaneous
  Country: CN (occurrence: CN)
  Receive Date: 20200504
  Receipt Date: 20200729
  Transmission Date: 20201102
  Serious: Yes (Hospitalization, Other)
  Sender: FDA-Public Use
  Company Number: CN-SA-2020SA112773

PATIENT

DRUGS (4)
  1. VITAMIN B1 [Concomitant]
     Active Substance: THIAMINE HYDROCHLORIDE
     Dosage: 1 DF, TID
     Route: 048
  2. METHYLCOBALAMIN. [Concomitant]
     Active Substance: METHYLCOBALAMIN
     Dosage: 1 DF, TID
     Route: 048
  3. AUBAGIO [Suspect]
     Active Substance: TERIFLUNOMIDE
     Indication: MULTIPLE SCLEROSIS
     Dosage: 14 MG, QD
     Route: 048
     Dates: start: 201907
  4. PREGABALIN. [Concomitant]
     Active Substance: PREGABALIN
     Dosage: 1 CAPSULE , 2 TIMES / DAY, ORAL, BID
     Route: 048

REACTIONS (37)
  - Spinal cord disorder [Unknown]
  - Intervertebral disc protrusion [Recovered/Resolved]
  - Blood immunoglobulin A decreased [Unknown]
  - Magnetic resonance imaging abnormal [Unknown]
  - Hypoaesthesia [Recovered/Resolved]
  - Muscular weakness [Unknown]
  - Blood potassium decreased [Unknown]
  - Hepatitis B surface antibody [Unknown]
  - Blood albumin decreased [Unknown]
  - Pulmonary mass [Recovered/Resolved]
  - Squamous cell carcinoma antigen increased [Unknown]
  - Hepatitis B core antibody positive [Unknown]
  - Rheumatoid factor increased [Unknown]
  - Adjusted calcium decreased [Unknown]
  - Myelitis [Unknown]
  - Emphysema [Unknown]
  - Low density lipoprotein increased [Unknown]
  - Pulmonary mass [Unknown]
  - Intervertebral disc degeneration [Unknown]
  - Blood calcium decreased [Unknown]
  - Monocyte count increased [Unknown]
  - Urinary sediment present [Unknown]
  - Hyperlipidaemia [Unknown]
  - Pulmonary calcification [Recovered/Resolved]
  - Lung disorder [Recovered/Resolved]
  - Blood cholesterol increased [Unknown]
  - Blood uric acid decreased [Unknown]
  - Alpha-L-fucosidase increased [Unknown]
  - Protein total decreased [Unknown]
  - Hyperreflexia [Unknown]
  - Hyperaesthesia [Unknown]
  - Demyelination [Unknown]
  - Computerised tomogram abnormal [Recovered/Resolved]
  - Blood folate decreased [Unknown]
  - Blood immunoglobulin M decreased [Unknown]
  - Multiple sclerosis relapse [Unknown]
  - Hypokalaemia [Unknown]

NARRATIVE: CASE EVENT DATE: 20200105
